FAERS Safety Report 23619678 (Version 2)
Quarter: 2024Q2

REPORT INFORMATION
  Report Type: Spontaneous
  Country: CL (occurrence: CL)
  Receive Date: 20240312
  Receipt Date: 20240422
  Transmission Date: 20240716
  Serious: Yes (Hospitalization)
  Sender: FDA-Public Use
  Company Number: CL-NOVOPROD-1185992

PATIENT
  Age: 47 Year
  Sex: Female
  Weight: 73.4 kg

DRUGS (14)
  1. RYBELSUS [Suspect]
     Active Substance: SEMAGLUTIDE
     Dosage: 3 MG, QD
  2. RYBELSUS [Suspect]
     Active Substance: SEMAGLUTIDE
     Indication: Product used for unknown indication
     Dosage: 7 MG, QD
     Dates: start: 202402, end: 202402
  3. ESCITALOPRAM [Concomitant]
     Active Substance: ESCITALOPRAM OXALATE
     Dosage: UNK
  4. QUETIAPINE [Concomitant]
     Active Substance: QUETIAPINE
     Dosage: PROGRESSIVE DOSAGE
  5. LEVOCETIRIZINE [Concomitant]
     Active Substance: LEVOCETIRIZINE
     Dosage: UNK
  6. ALBUTEROL [Concomitant]
     Active Substance: ALBUTEROL
     Dosage: AS NECESSARY CURRENTLY EVERY 4-6 HOURS
  7. SYMBICORT [Concomitant]
     Active Substance: BUDESONIDE\FORMOTEROL FUMARATE DIHYDRATE
     Dosage: 2 PUFF
  8. LOSARTAN [Concomitant]
     Active Substance: LOSARTAN
     Dosage: HALF Q12H
  9. BISOPROLOL [Concomitant]
     Active Substance: BISOPROLOL\BISOPROLOL FUMARATE
     Dosage: 2.5 QD; DOSAGE UNIT WAS NOT SPECIFIED
  10. ASPIRIN [Concomitant]
     Active Substance: ASPIRIN
     Dosage: 100 MG, QD
  11. OMEPRAZOLE [Concomitant]
     Active Substance: OMEPRAZOLE
     Dosage: 20 MG, QD (AM)
  12. INSULIN GLARGINE [Concomitant]
     Active Substance: INSULIN GLARGINE
     Dosage: 15 IU, QD (NIGHT)
  13. METFORMIN [Concomitant]
     Active Substance: METFORMIN HYDROCHLORIDE
     Dosage: 1000 MG, QD
  14. EMPAGLIFLOZIN\METFORMIN HYDROCHLORIDE [Concomitant]
     Active Substance: EMPAGLIFLOZIN\METFORMIN HYDROCHLORIDE
     Dosage: 12.5/1000

REACTIONS (2)
  - Faecalith [Recovered/Resolved]
  - Incorrect dose administered [Unknown]

NARRATIVE: CASE EVENT DATE: 20240201
